FAERS Safety Report 17656639 (Version 1)
Quarter: 2020Q2

REPORT INFORMATION
  Report Type: Spontaneous
  Country: US (occurrence: US)
  Receive Date: 20200410
  Receipt Date: 20200410
  Transmission Date: 20200713
  Serious: Yes (Other)
  Sender: FDA-Public Use
  Company Number: NVSC2020US096197

PATIENT
  Sex: Male

DRUGS (3)
  1. ICLUSIG [Concomitant]
     Active Substance: PONATINIB
     Indication: PRODUCT USED FOR UNKNOWN INDICATION
     Dosage: UNK
     Route: 065
  2. SPRYCEL [Concomitant]
     Active Substance: DASATINIB
     Indication: PRODUCT USED FOR UNKNOWN INDICATION
     Dosage: UNK
     Route: 065
  3. GLEEVEC [Suspect]
     Active Substance: IMATINIB MESYLATE
     Indication: CHRONIC MYELOID LEUKAEMIA
     Dosage: UNK
     Route: 065

REACTIONS (13)
  - Haemorrhoids [Unknown]
  - Fatigue [Unknown]
  - White blood cell count increased [Unknown]
  - Muscular weakness [Unknown]
  - Mood altered [Unknown]
  - Anxiety [Unknown]
  - Arthralgia [Unknown]
  - Pancreatitis [Unknown]
  - Drug tolerance [Unknown]
  - Drug ineffective [Unknown]
  - Constipation [Unknown]
  - Pyrexia [Unknown]
  - Dry skin [Unknown]
